FAERS Safety Report 5024627-1 (Version None)
Quarter: 2006Q2

REPORT INFORMATION
  Report Type: 
  Country: None (occurrence: None)
  Receive Date: 20060426
  Receipt Date: 20060208
  Transmission Date: 20061013
  Serious: Yes (Other)
  Sender: FDA-Public Use
  Company Number: 2006020205

PATIENT
  Sex: Male
  Weight: 124.7392 kg

DRUGS (4)
  1. LYRICA [Suspect]
     Indication: NEURALGIA
     Dosage: 75 MG (25 MG, 3 IN 1 D)
     Dates: start: 20060203
  2. NEURONTIN [Suspect]
     Indication: NEURALGIA
  3. ALL OTHER THERAPEUTIC PRODUCTS (ALL OTHER THERAPEUTIC PRODUCTS) [Suspect]
     Indication: ILL-DEFINED DISORDER
  4. DICLOFENAC SODIUM [Concomitant]

REACTIONS (3)
  - BURNING SENSATION [None]
  - DYSKINESIA [None]
  - PRURITUS [None]
